FAERS Safety Report 14307822 (Version 1)
Quarter: 2017Q4

REPORT INFORMATION
  Report Type: Report from Study
  Country: CN (occurrence: CN)
  Receive Date: 20171220
  Receipt Date: 20171220
  Transmission Date: 20180321
  Serious: Yes (Death, Other)
  Sender: FDA-Public Use
  Company Number: CN-ROCHE-2043366

PATIENT

DRUGS (2)
  1. ASPIRIN. [Concomitant]
     Active Substance: ASPIRIN
     Route: 048
  2. ALTEPLASE. [Suspect]
     Active Substance: ALTEPLASE
     Indication: ISCHAEMIC STROKE
     Dosage: 10% OF ALTEPLASE WAS RAPID INTRAVENOUS BOLUS INJECTION IN 1 MIN AND THE REMAINING 90% WAS PREPARED B
     Route: 042

REACTIONS (2)
  - Death [Fatal]
  - Haemorrhage intracranial [Unknown]
